FAERS Safety Report 5982226-9 (Version None)
Quarter: 2008Q4

REPORT INFORMATION
  Report Type: 
  Country: None (occurrence: None)
  Receive Date: 20081208
  Receipt Date: 20081126
  Transmission Date: 20090506
  Serious: Yes (Other)
  Sender: FDA-Public Use
  Company Number: CA-JNJFOC-20081200180

PATIENT
  Age: 45 Year
  Sex: Female
  Weight: 70 kg

DRUGS (13)
  1. REMICADE [Suspect]
     Route: 042
  2. REMICADE [Suspect]
     Dosage: INFUSIONS GIVEN EVERY 6 WEEKS ON UNKNOWN DATES
     Route: 042
  3. REMICADE [Suspect]
     Indication: ANKYLOSING SPONDYLITIS
     Route: 042
  4. VITAMIN B-12 [Concomitant]
  5. RESTORIL [Concomitant]
  6. CALCIUM + VITAMIN D [Concomitant]
  7. LOVAZA [Concomitant]
  8. ESTROGEL [Concomitant]
  9. SUPEUDOL [Concomitant]
  10. IMODIUM [Concomitant]
  11. FOSAMAX [Concomitant]
  12. PREVACID [Concomitant]
  13. WELLBUTRIN [Concomitant]

REACTIONS (1)
  - CHEST X-RAY ABNORMAL [None]
